FAERS Safety Report 24192221 (Version 1)
Quarter: 2024Q3

REPORT INFORMATION
  Report Type: Report from Study
  Country: US (occurrence: US)
  Receive Date: 20240809
  Receipt Date: 20240809
  Transmission Date: 20241017
  Serious: No
  Sender: ACADIA PHARMACEUTICALS
  Company Number: US-ACADIA PHARMACEUTICALS INC.-ACA-2024-PIM-003636

PATIENT
  Sex: Male

DRUGS (4)
  1. NUPLAZID [Suspect]
     Active Substance: PIMAVANSERIN TARTRATE
     Indication: Parkinson^s disease
     Dosage: 34 MILLIGRAM, QD
     Route: 048
     Dates: start: 20240313
  2. FISH OIL [Concomitant]
     Active Substance: FISH OIL
     Dosage: 100 MILLIGRAM
  3. VITAMINS NOS [Concomitant]
     Active Substance: VITAMINS
     Dosage: ADLT 50+
  4. PROBIOTICS NOS [Concomitant]
     Active Substance: PROBIOTICS NOS
     Dosage: ADULT

REACTIONS (1)
  - Anxiety [Not Recovered/Not Resolved]
